FAERS Safety Report 6383082-X (Version None)
Quarter: 2009Q3

REPORT INFORMATION
  Report Type: 
  Country: None (occurrence: None)
  Receive Date: 20090928
  Receipt Date: 20090909
  Transmission Date: 20100115
  Serious: Yes (Hospitalization)
  Sender: FDA-Public Use
  Company Number: JPI-P-008515

PATIENT
  Age: 48 Year
  Sex: Female

DRUGS (25)
  1. XYREM [Suspect]
     Indication: INSOMNIA
     Dosage: SEE IMAGE
     Route: 048
     Dates: start: 20080101, end: 20080801
  2. XYREM [Suspect]
     Indication: INSOMNIA
     Dosage: SEE IMAGE
     Route: 048
     Dates: start: 20080801, end: 20081007
  3. XYREM [Suspect]
     Indication: INSOMNIA
     Dosage: SEE IMAGE
     Route: 048
     Dates: start: 20080801, end: 20090902
  4. XYREM [Suspect]
     Indication: INSOMNIA
     Dosage: SEE IMAGE
     Route: 048
     Dates: start: 20081008, end: 20090902
  5. XYREM [Suspect]
     Indication: INSOMNIA
     Dosage: SEE IMAGE
     Route: 048
     Dates: start: 20090904, end: 20090905
  6. XYREM [Suspect]
     Indication: INSOMNIA
     Dosage: SEE IMAGE
     Route: 048
     Dates: start: 20050914
  7. ALPRAZOLAM [Suspect]
     Indication: INSOMNIA
     Dosage: 3 MG (1 MG, 3 IN 1 D)
  8. OXYMORPHONE HCL [Suspect]
     Indication: BACK PAIN
  9. OXYCODONE HCL AND ACETAMINOPHEN [Suspect]
     Indication: BACK PAIN
     Dosage: AS REQUIRED
  10. OXYMORPHONE HCL [Suspect]
     Indication: BACK PAIN
     Dosage: 120 MG (60 MG, 2 IN 1 D)
  11. ASPIRIN [Concomitant]
  12. CALCIUM CARBONATE [Concomitant]
  13. DULOXETINE HYDROCHLORIDE [Concomitant]
  14. MULTI-VITAMIN [Concomitant]
  15. OLANZAPINE [Concomitant]
  16. PRIMIDONE [Concomitant]
  17. VARENICLINE [Concomitant]
  18. QUETIAPINE FUMARATE [Concomitant]
  19. TOPIRAMATE [Concomitant]
  20. OMEGA 3 SUPPLEMENT [Concomitant]
  21. ALUMINUM HYDROXIDE AND MAGNESIUM HYDROXIDE [Concomitant]
  22. ACETAMINOPHEN [Concomitant]
  23. ZOLPIDEM [Concomitant]
  24. HYDROXYZINE PAMOATE [Concomitant]
  25. NICOTINE [Concomitant]

REACTIONS (14)
  - AGITATION [None]
  - ANXIETY [None]
  - BLOOD ALDOSTERONE INCREASED [None]
  - BLOOD PARATHYROID HORMONE INCREASED [None]
  - BLOOD POTASSIUM DECREASED [None]
  - CHRONIC OBSTRUCTIVE PULMONARY DISEASE [None]
  - CONFUSIONAL STATE [None]
  - DEPRESSION [None]
  - HYPOTENSION [None]
  - MENTAL STATUS CHANGES [None]
  - RENAL IMPAIRMENT [None]
  - THYROID FUNCTION TEST ABNORMAL [None]
  - UNRESPONSIVE TO STIMULI [None]
  - WEIGHT INCREASED [None]
